FAERS Safety Report 17306334 (Version 2)
Quarter: 2020Q1

REPORT INFORMATION
  Report Type: Spontaneous
  Country: FR (occurrence: FR)
  Receive Date: 20200123
  Receipt Date: 20200128
  Transmission Date: 20200409
  Serious: Yes (Death, Hospitalization)
  Sender: FDA-Public Use
  Company Number: FR-TEVA-2020-FR-1171480

PATIENT
  Age: 78 Year
  Sex: Female
  Weight: 39 kg

DRUGS (4)
  1. TARDYFERON 80 MG, COMPRIM? ENROB? [Suspect]
     Active Substance: FERROUS SULFATE
     Indication: IRON DEFICIENCY
     Dosage: 2 DOSAGE FORM
     Route: 048
     Dates: end: 20191112
  2. MOGAMULIZUMAB [Suspect]
     Active Substance: MOGAMULIZUMAB
     Indication: CUTANEOUS T-CELL LYMPHOMA
     Dosage: UNKNOWN
     Route: 041
     Dates: start: 20190717, end: 20191031
  3. ESOMEPRAZOLE. [Suspect]
     Active Substance: ESOMEPRAZOLE MAGNESIUM
     Indication: PROPHYLAXIS
     Dosage: 40 MILLIGRAMJ
     Route: 048
     Dates: end: 20191111
  4. FENOFIBRATE. [Suspect]
     Active Substance: FENOFIBRATE
     Indication: DYSLIPIDAEMIA
     Dosage: 160 MILLIGRAM
     Route: 048
     Dates: end: 20191111

REACTIONS (8)
  - Acute kidney injury [Fatal]
  - Fall [Fatal]
  - Hyperglycaemia [Fatal]
  - Altered state of consciousness [Fatal]
  - Dehydration [Fatal]
  - Hypernatraemia [Fatal]
  - Multiple organ dysfunction syndrome [Fatal]
  - Fall [Fatal]

NARRATIVE: CASE EVENT DATE: 20191104
